FAERS Safety Report 8958473 (Version 1)
Quarter: 2012Q4

REPORT INFORMATION
  Report Type: Spontaneous
  Country: US (occurrence: None)
  Receive Date: 20121205
  Receipt Date: 20121205
  Transmission Date: 20130627
  Serious: Yes (Hospitalization)
  Sender: FDA-Public Use
  Company Number: None

PATIENT
  Age: 65 Year
  Sex: Male
  Weight: 90.6 kg

DRUGS (1)
  1. INSULIN [Suspect]
     Indication: DIABETES MELLITUS
     Dosage: UNITS PRN SQ
     Route: 058
     Dates: start: 30060706

REACTIONS (6)
  - Asthenia [None]
  - Treatment noncompliance [None]
  - Dizziness [None]
  - Sedation [None]
  - Hypoglycaemia [None]
  - Unresponsive to stimuli [None]
